FAERS Safety Report 21096658 (Version 2)
Quarter: 2023Q1

REPORT INFORMATION
  Report Type: Spontaneous
  Country: US (occurrence: US)
  Receive Date: 20220718
  Receipt Date: 20230105
  Transmission Date: 20230418
  Serious: Yes (Hospitalization, Other)
  Sender: FDA-Public Use
  Company Number: US-VERTEX PHARMACEUTICALS-2021-020266

PATIENT
  Age: 30 Year
  Sex: Male

DRUGS (4)
  1. TRIKAFTA [Suspect]
     Active Substance: ELEXACAFTOR\IVACAFTOR\TEZACAFTOR
     Indication: Cystic fibrosis
     Dosage: 2 ORANGE TABS AM, 1 BLUE TAB PM
     Route: 048
     Dates: start: 20191121
  2. AZTREONAM LYSINE [Suspect]
     Active Substance: AZTREONAM LYSINE
     Indication: Product used for unknown indication
     Dosage: UNK
     Route: 065
  3. CAYSTON [Concomitant]
     Active Substance: AZTREONAM
     Dosage: 75 MILLIGRAM
  4. TRAMADOL HCL [Concomitant]
     Active Substance: TRAMADOL HYDROCHLORIDE

REACTIONS (9)
  - Gastrostomy tube site complication [Recovered/Resolved]
  - Seizure [Unknown]
  - Gastrostomy tube removal [Recovered/Resolved]
  - Weight decreased [Not Recovered/Not Resolved]
  - Vomiting [Recovered/Resolved]
  - Airway complication of anaesthesia [Unknown]
  - Dyspepsia [Recovered/Resolved]
  - Weight increased [Recovered/Resolved]
  - Procedural complication [Recovering/Resolving]

NARRATIVE: CASE EVENT DATE: 20211201
